FAERS Safety Report 5404712-2 (Version None)
Quarter: 2007Q3

REPORT INFORMATION
  Report Type: 
  Country: None (occurrence: None)
  Receive Date: 20070801
  Receipt Date: 20070717
  Transmission Date: 20080115
  Serious: Yes (Hospitalization)
  Sender: FDA-Public Use
  Company Number: 8025582

PATIENT
  Age: 19 Year
  Sex: Female

DRUGS (3)
  1. KEPPRA [Suspect]
     Indication: ATYPICAL BENIGN PARTIAL EPILEPSY
     Dosage: 500 MG 2/D PO
     Route: 048
     Dates: start: 19980101, end: 20070601
  2. KEPPRA [Suspect]
     Indication: ATYPICAL BENIGN PARTIAL EPILEPSY
     Dosage: 1250 MG 2/D PO
     Route: 048
     Dates: start: 20070602, end: 20070601
  3. KEPPRA [Suspect]
     Indication: ATYPICAL BENIGN PARTIAL EPILEPSY
     Dosage: 1000 MG 2/D PO
     Route: 048
     Dates: start: 20070601

REACTIONS (4)
  - EPILEPSY [None]
  - FATIGUE [None]
  - HYPOTENSION [None]
  - TREATMENT NONCOMPLIANCE [None]
